FAERS Safety Report 8709279 (Version 3)
Quarter: 2012Q4

REPORT INFORMATION
  Report Type: 
  Country: US (occurrence: US)
  Receive Date: 20120806
  Receipt Date: 20120917
  Transmission Date: 20130627
  Serious: Yes (Hospitalization)
  Sender: FDA-Public Use
  Company Number: US-B.I. PHARMACEUTICALS,INC./RIDGEFIELD-2012-BP-17130BP

PATIENT
  Age: 82 Year
  Sex: Male

DRUGS (2)
  1. PRADAXA [Suspect]
     Indication: ATRIAL FIBRILLATION
     Dosage: 150 mg
     Route: 048
     Dates: end: 20120819
  2. PRADAXA [Suspect]
     Dosage: 150 mg
     Route: 048
     Dates: start: 20120826, end: 20120827

REACTIONS (3)
  - Bladder neoplasm [Not Recovered/Not Resolved]
  - Blood urine present [Recovered/Resolved]
  - Haemorrhage [Recovered/Resolved]
